FAERS Safety Report 4801924-3 (Version None)
Quarter: 2005Q4

REPORT INFORMATION
  Report Type: 
  Country: None (occurrence: None)
  Receive Date: 20051011
  Receipt Date: 20050928
  Transmission Date: 20060501
  Serious: Yes (Life-Threatening, Hospitalization, Other)
  Sender: FDA-Public Use
  Company Number: 2005003387

PATIENT
  Age: 59 Year
  Sex: Male
  Weight: 71.2147 kg

DRUGS (3)
  1. NEURONTIN [Suspect]
     Indication: PAIN IN EXTREMITY
     Dates: start: 19990311
  2. NEURONTIN [Suspect]
     Indication: RADICULOPATHY
     Dates: start: 19990311
  3. NEURONTIN [Suspect]
     Indication: RESTLESS LEGS SYNDROME
     Dates: start: 19990311

REACTIONS (31)
  - AMNESIA [None]
  - CEREBROVASCULAR ACCIDENT [None]
  - CERVICAL VERTEBRAL FRACTURE [None]
  - COMA [None]
  - CONJUNCTIVITIS [None]
  - DIFFICULT TO WEAN FROM VENTILATOR [None]
  - DRUG INEFFECTIVE [None]
  - DYSPHAGIA [None]
  - EAR CANAL INJURY [None]
  - EAR DEFORMITY ACQUIRED [None]
  - GUN SHOT WOUND [None]
  - HEAD DEFORMITY [None]
  - HEAD INJURY [None]
  - INTERSTITIAL LUNG DISEASE [None]
  - INTERVERTEBRAL DISC DISORDER [None]
  - LUNG HYPERINFLATION [None]
  - NAUSEA [None]
  - NOSOCOMIAL INFECTION [None]
  - PNEUMONIA HAEMOPHILUS [None]
  - POLYTRAUMATISM [None]
  - PULMONARY OEDEMA [None]
  - SELF INJURIOUS BEHAVIOUR [None]
  - SKULL FRACTURED BASE [None]
  - STATUS EPILEPTICUS [None]
  - STRABISMUS [None]
  - SUBARACHNOID HAEMORRHAGE [None]
  - SUBDURAL HAEMATOMA [None]
  - SUBDURAL HYGROMA [None]
  - SUICIDE ATTEMPT [None]
  - SYNCOPE [None]
  - ULCERATIVE KERATITIS [None]
